FAERS Safety Report 16416718 (Version 1)
Quarter: 2019Q2

REPORT INFORMATION
  Report Type: Spontaneous
  Country: ZA (occurrence: ZA)
  Receive Date: 20190611
  Receipt Date: 20190611
  Transmission Date: 20190711
  Serious: Yes (Hospitalization)
  Sender: FDA-Public Use
  Company Number: ZA-GLAXOSMITHKLINE-ZA2019GSK101258

PATIENT
  Sex: Female

DRUGS (5)
  1. ADCO SIMVASTATIN [Suspect]
     Active Substance: SIMVASTATIN
     Indication: BLOOD CHOLESTEROL ABNORMAL
     Dosage: 20 MG, UNK
     Route: 048
  2. BILOCOR [Suspect]
     Active Substance: BISOPROLOL FUMARATE
     Indication: HYPERTENSION
     Dosage: 5 MG, UNK
     Route: 048
  3. RUPANASE [Suspect]
     Active Substance: RUPATADINE FUMARATE
     Indication: MULTIPLE ALLERGIES
     Dosage: 10 MG, UNK
     Route: 045
  4. AVAMYS [Suspect]
     Active Substance: FLUTICASONE FUROATE
     Indication: RHINITIS ALLERGIC
     Dosage: 27 UG, UNK
     Route: 045
     Dates: end: 201812
  5. ALTOSEC [Suspect]
     Active Substance: OMEPRAZOLE
     Indication: ULCER
     Dosage: 20 MG, UNK
     Route: 048

REACTIONS (1)
  - Bronchitis [Unknown]
